FAERS Safety Report 12833546 (Version 2)
Quarter: 2016Q4

REPORT INFORMATION
  Report Type: Report from Study
  Country: NL (occurrence: NL)
  Receive Date: 20161010
  Receipt Date: 20161107
  Transmission Date: 20170207
  Serious: Yes (Other)
  Sender: FDA-Public Use
  Company Number: PHHO2015NL016676

PATIENT
  Age: 71 Year
  Sex: Female
  Weight: 100 kg

DRUGS (3)
  1. TRAMETINIB [Suspect]
     Active Substance: TRAMETINIB
     Indication: MALIGNANT MELANOMA
     Dosage: 2 MG, QD
     Route: 048
     Dates: start: 20130628, end: 20150319
  2. PARACETAMOL [Concomitant]
     Active Substance: ACETAMINOPHEN
     Indication: PROPHYLAXIS
     Dosage: 1000 MG, QID
     Route: 048
     Dates: start: 20141216
  3. COMPARATOR DABRAFENIB [Suspect]
     Active Substance: DABRAFENIB
     Indication: MALIGNANT MELANOMA
     Dosage: 75 MG, BID
     Route: 048
     Dates: start: 20130704, end: 20150319

REACTIONS (1)
  - Ejection fraction decreased [Recovered/Resolved]

NARRATIVE: CASE EVENT DATE: 20150420
